FAERS Safety Report 12395985 (Version 2)
Quarter: 2016Q2

REPORT INFORMATION
  Report Type: Spontaneous
  Country: US (occurrence: US)
  Receive Date: 20160524
  Receipt Date: 20160607
  Transmission Date: 20160815
  Serious: Yes (Other)
  Sender: FDA-Public Use
  Company Number: US-AMGEN-USASP2016064676

PATIENT
  Age: 72 Year
  Sex: Female
  Weight: 118.19 kg

DRUGS (1)
  1. ENBREL [Suspect]
     Active Substance: ETANERCEPT
     Indication: RHEUMATOID ARTHRITIS
     Dosage: 50 MG, QWK
     Route: 058
     Dates: start: 2009

REACTIONS (5)
  - Nasopharyngitis [Unknown]
  - Large intestinal polypectomy [Recovered/Resolved]
  - Cholecystectomy [Unknown]
  - Herpes zoster [Unknown]
  - Infection [Unknown]

NARRATIVE: CASE EVENT DATE: 2014
